FAERS Safety Report 24047208 (Version 1)
Quarter: 2024Q3

REPORT INFORMATION
  Report Type: Report from Study
  Country: ZA (occurrence: ZA)
  Receive Date: 20240703
  Receipt Date: 20240703
  Transmission Date: 20241017
  Serious: Yes (Other)
  Sender: AMGEN
  Company Number: ZA-AMGEN-ZAFSL2024127939

PATIENT
  Age: 60 Year
  Sex: Female

DRUGS (1)
  1. VECTIBIX [Suspect]
     Active Substance: PANITUMUMAB
     Indication: Product used for unknown indication
     Dosage: UNK 1 ST WEEK OF MARCH 2024 AND 3RD WEEK OF MARCH 2024
     Route: 065
     Dates: start: 202403, end: 202403

REACTIONS (9)
  - Neuropathy peripheral [Unknown]
  - Skin reaction [Recovered/Resolved]
  - Illness [Recovered/Resolved]
  - Scar [Not Recovered/Not Resolved]
  - Oral pain [Recovered/Resolved]
  - Dermatitis [Recovered/Resolved]
  - Rash [Recovered/Resolved]
  - Abdominal pain [Recovered/Resolved]
  - Alopecia [Unknown]

NARRATIVE: CASE EVENT DATE: 20240301
